FAERS Safety Report 7128176-6 (Version None)
Quarter: 2010Q4

REPORT INFORMATION
  Report Type: 
  Country: None (occurrence: None)
  Receive Date: 20101130
  Receipt Date: 20101118
  Transmission Date: 20110411
  Serious: Yes (Other)
  Sender: FDA-Public Use
  Company Number: PHHY2010BR40318

PATIENT
  Sex: Female

DRUGS (1)
  1. ZELMAC [Suspect]
     Dosage: 6 MG
     Route: 048

REACTIONS (2)
  - DRUG DOSE OMISSION [None]
  - INTESTINAL HAEMORRHAGE [None]
